FAERS Safety Report 4908351-9 (Version None)
Quarter: 2006Q1

REPORT INFORMATION
  Report Type: 
  Country: None (occurrence: None)
  Receive Date: 20060210
  Receipt Date: 20040427
  Transmission Date: 20060701
  Serious: Yes (Hospitalization)
  Sender: FDA-Public Use
  Company Number: DE-ABBOTT-04P-062-0258986-01

PATIENT
  Sex: Female
  Weight: 58 kg

DRUGS (7)
  1. HUMIRA [Suspect]
     Indication: RHEUMATOID ARTHRITIS
     Dosage: 40 MILLIGRAM
     Route: 058
     Dates: start: 20031017
  2. ROFECOXIB [Concomitant]
     Indication: ANALGESIC EFFECT
     Route: 048
     Dates: start: 19990101
  3. PREDNISOLONE [Concomitant]
     Indication: RHEUMATOID ARTHRITIS
     Route: 048
     Dates: start: 19970601
  4. METHOTREXATE [Concomitant]
     Indication: RHEUMATOID ARTHRITIS
     Route: 048
     Dates: start: 20010901
  5. FOLIC ACID [Concomitant]
     Indication: VITAMIN SUPPLEMENTATION
     Route: 048
     Dates: start: 20010901
  6. METOPROLOL TARTRATE [Concomitant]
     Indication: HYPERTENSION
  7. RAMIPRIL [Concomitant]
     Indication: HYPERTENSION

REACTIONS (1)
  - POST PROCEDURAL HAEMORRHAGE [None]
